FAERS Safety Report 7226651-7 (Version None)
Quarter: 2011Q1

REPORT INFORMATION
  Report Type: 
  Country: None (occurrence: None)
  Receive Date: 20110110
  Receipt Date: 20110110
  Transmission Date: 20110831
  Serious: Yes (Other)
  Sender: FDA-Public Use
  Company Number: None

PATIENT
  Age: 17 Year
  Sex: Female
  Weight: 45.3597 kg

DRUGS (1)
  1. ETONOGESTREL IMPLANT 68 MG ORGANON [Suspect]
     Indication: CONTRACEPTION

REACTIONS (2)
  - MENORRHAGIA [None]
  - ABDOMINAL PAIN [None]
